FAERS Safety Report 18527795 (Version 2)
Quarter: 2020Q4

REPORT INFORMATION
  Report Type: Report from Study
  Country: MX (occurrence: MX)
  Receive Date: 20201120
  Receipt Date: 20201210
  Transmission Date: 20210114
  Serious: Yes (Other)
  Sender: FDA-Public Use
  Company Number: MX-JNJFOC-20201115029

PATIENT
  Age: 22 Year
  Sex: Male
  Weight: 110 kg

DRUGS (6)
  1. INVEDA SUSTENNA [Suspect]
     Active Substance: PALIPERIDONE PALMITATE
  2. INVEDA SUSTENNA [Suspect]
     Active Substance: PALIPERIDONE PALMITATE
  3. INVEDA SUSTENNA [Suspect]
     Active Substance: PALIPERIDONE PALMITATE
     Indication: SCHIZOPHRENIA
     Route: 030
  4. INVEDA SUSTENNA [Suspect]
     Active Substance: PALIPERIDONE PALMITATE
  5. INVEDA SUSTENNA [Suspect]
     Active Substance: PALIPERIDONE PALMITATE
  6. INVEDA SUSTENNA [Suspect]
     Active Substance: PALIPERIDONE PALMITATE

REACTIONS (2)
  - Injection site haemorrhage [Unknown]
  - Needle issue [Unknown]

NARRATIVE: CASE EVENT DATE: 202010
